FAERS Safety Report 13084433 (Version 1)
Quarter: 2017Q1

REPORT INFORMATION
  Report Type: Spontaneous
  Country: US (occurrence: US)
  Receive Date: 20170104
  Receipt Date: 20170104
  Transmission Date: 20170428
  Serious: Yes (Other)
  Sender: FDA-Public Use
  Company Number: None

PATIENT
  Age: 54 Year
  Sex: Female

DRUGS (1)
  1. ENBREL [Suspect]
     Active Substance: ETANERCEPT
     Indication: RHEUMATOID ARTHRITIS
     Dosage: 1 SYRINGE 1X WEEKLY SQ
     Route: 058
     Dates: start: 20140805

REACTIONS (2)
  - Spinal operation [None]
  - Drug dose omission [None]

NARRATIVE: CASE EVENT DATE: 201612
